FAERS Safety Report 4571422-3 (Version None)
Quarter: 2005Q1

REPORT INFORMATION
  Report Type: 
  Country: None (occurrence: None)
  Receive Date: 20050203
  Receipt Date: 20050203
  Transmission Date: 20050727
  Serious: No
  Sender: FDA-Public Use
  Company Number: None

PATIENT
  Age: 72 Year
  Sex: Male
  Weight: 161.4805 kg

DRUGS (1)
  1. OXYCODONE ER 80 MG [Suspect]
     Indication: OSTEOARTHRITIS
     Dosage: (3 AM, 2 NOON. 3 PM)

REACTIONS (3)
  - DRUG INEFFECTIVE [None]
  - PAIN [None]
  - PHARMACEUTICAL PRODUCT COMPLAINT [None]
